FAERS Safety Report 10035356 (Version 1)
Quarter: 2014Q1

REPORT INFORMATION
  Report Type: Spontaneous
  Country: JP (occurrence: None)
  Receive Date: 20140321
  Receipt Date: 20140321
  Transmission Date: 20141002
  Serious: Yes (Death)
  Sender: FDA-Public Use
  Company Number: 2014P1002222

PATIENT
  Sex: Male
  Weight: 63.5 kg

DRUGS (6)
  1. OLANZAPINE [Suspect]
     Indication: SCHIZOPHRENIA
  2. RISPERDAL [Concomitant]
  3. SENNOSIDE [Concomitant]
  4. HALOPERIDOL [Concomitant]
  5. FLUNITRAZEPAM [Concomitant]
  6. LOXOPROFEN [Concomitant]

REACTIONS (8)
  - Hyponatraemia [None]
  - Water intoxication [None]
  - Abdominal distension [None]
  - Vomiting [None]
  - Fall [None]
  - Snoring [None]
  - Brain oedema [None]
  - Pulmonary oedema [None]
